FAERS Safety Report 12114891 (Version 2)
Quarter: 2016Q1

REPORT INFORMATION
  Report Type: Spontaneous
  Country: SE (occurrence: SE)
  Receive Date: 20160225
  Receipt Date: 20160308
  Transmission Date: 20160526
  Serious: Yes (Hospitalization, Other)
  Sender: FDA-Public Use
  Company Number: SE-PFIZER INC-2016103593

PATIENT
  Sex: Male

DRUGS (5)
  1. LEVAXIN [Concomitant]
     Active Substance: LEVOTHYROXINE SODIUM
     Dosage: UNK
  2. LAMICTAL [Concomitant]
     Active Substance: LAMOTRIGINE
     Dosage: UNK
  3. LITHIONIT [Suspect]
     Active Substance: LITHIUM SULFATE
     Dosage: 42 MG, UNK
     Route: 064
     Dates: start: 2015, end: 2016
  4. DOLCONTIN [Suspect]
     Active Substance: MORPHINE
     Route: 064
     Dates: start: 201601, end: 201601
  5. PROPAVAN [Concomitant]
     Active Substance: PROPIOMAZINE
     Dosage: UNK
     Route: 048

REACTIONS (4)
  - Maternal exposure during pregnancy [Unknown]
  - Drug withdrawal syndrome neonatal [Recovered/Resolved]
  - Arrhythmia neonatal [Recovered/Resolved]
  - Respiratory disorder [Unknown]

NARRATIVE: CASE EVENT DATE: 2015
